FAERS Safety Report 8380998-X (Version None)
Quarter: 2012Q2

REPORT INFORMATION
  Report Type: 
  Country: None (occurrence: None)
  Receive Date: 20120523
  Receipt Date: 20120521
  Transmission Date: 20120825
  Serious: Yes (Other)
  Sender: FDA-Public Use
  Company Number: CH-PFIZER INC-2012117319

PATIENT
  Age: 57 Year
  Sex: Male

DRUGS (8)
  1. ATORVASTATIN CALCIUM [Suspect]
     Indication: BLOOD CHOLESTEROL INCREASED
     Dosage: 5 MG, 1X/DAY, IN THE MORNING, REPORTED ALSO AS HALF OF A 10 MG TABLET
     Route: 065
     Dates: start: 20120101
  2. AMLODIPINE [Concomitant]
     Dosage: 5 MG, 1X/DAY, TAKEN IN THE MORNING
  3. ALLOPURINOL [Concomitant]
     Dosage: 100 MG, 1X/DAY, TAKEN IN THE MORNING
  4. SELECTOL/CELIPRO LICH [Concomitant]
     Dosage: TAKEN IN THE MORNING AT HALF A DOSE DAILY (1/2-0-0)
  5. LORZAAR PROTECT [Concomitant]
     Dosage: 1 DF, 1X/DAY
  6. MAGNESIUM VERLA [Concomitant]
     Dosage: 2 DF, 1X/DAY
  7. CENTRUM [Concomitant]
     Dosage: 1 DF, 1X/DAY, TAKEN IN THE MORNING
  8. ASPIRIN [Concomitant]
     Dosage: 100 UNK, DAILY, TAKEN IN THE EVENING

REACTIONS (4)
  - PERFORMANCE STATUS DECREASED [None]
  - MYALGIA [None]
  - HEART RATE INCREASED [None]
  - WEIGHT INCREASED [None]
